FAERS Safety Report 7574399-1 (Version None)
Quarter: 2011Q2

REPORT INFORMATION
  Report Type: 
  Country: None (occurrence: None)
  Receive Date: 20110621
  Receipt Date: 20110608
  Transmission Date: 20111010
  Serious: Yes (Death)
  Sender: FDA-Public Use
  Company Number: 947634

PATIENT
  Sex: Female

DRUGS (15)
  1. ETOPOSIDE [Suspect]
     Indication: CHEMOTHERAPY
     Dosage: 100 MG/M^2
     Dates: start: 20041101
  2. ETOPOSIDE [Suspect]
     Indication: BONE SARCOMA
     Dosage: 100 MG/M^2
     Dates: start: 20041101
  3. ETOPOSIDE [Suspect]
     Indication: CHEMOTHERAPY
     Dosage: 100 MG/M^2
     Dates: start: 20030601
  4. ETOPOSIDE [Suspect]
     Indication: BONE SARCOMA
     Dosage: 100 MG/M^2
     Dates: start: 20030601
  5. DOXORUBICIN HCL [Suspect]
     Indication: BONE SARCOMA
     Dosage: 25 MG/M^2, 16 MG/M^2
     Dates: end: 19910301
  6. DOXORUBICIN HCL [Suspect]
     Indication: BONE SARCOMA
     Dosage: 25 MG/M^2, 16 MG/M^2
     Dates: start: 19900701
  7. METHOTREXATE [Suspect]
     Indication: BONE SARCOMA
     Dates: start: 19900701, end: 19910301
  8. IFOSFAMIDE [Suspect]
     Indication: CHEMOTHERAPY
     Dosage: 1800 MG/M^2, 1100 MG/M^2
     Dates: end: 19910301
  9. IFOSFAMIDE [Suspect]
     Indication: BONE SARCOMA
     Dosage: 1800 MG/M^2, 1100 MG/M^2
     Dates: end: 19910301
  10. IFOSFAMIDE [Suspect]
     Indication: CHEMOTHERAPY
     Dosage: 1800 MG/M^2, 1100 MG/M^2
     Dates: start: 19900701
  11. IFOSFAMIDE [Suspect]
     Indication: BONE SARCOMA
     Dosage: 1800 MG/M^2, 1100 MG/M^2
     Dates: start: 19900701
  12. IFOSFAMIDE [Suspect]
     Indication: CHEMOTHERAPY
     Dosage: 1800 MG/M^2, 1100 MG/M^2
     Dates: start: 20030601
  13. IFOSFAMIDE [Suspect]
     Indication: BONE SARCOMA
     Dosage: 1800 MG/M^2, 1100 MG/M^2
     Dates: start: 20030601
  14. IFOSFAMIDE [Suspect]
     Indication: CHEMOTHERAPY
     Dosage: 1800 MG/M^2, 1100 MG/M^2
     Dates: start: 20041101
  15. IFOSFAMIDE [Suspect]
     Indication: BONE SARCOMA
     Dosage: 1800 MG/M^2, 1100 MG/M^2
     Dates: start: 20041101

REACTIONS (17)
  - NERVE INJURY [None]
  - ACUTE GRAFT VERSUS HOST DISEASE IN INTESTINE [None]
  - TUMOUR NECROSIS [None]
  - ACUTE MYELOID LEUKAEMIA [None]
  - CYTOMEGALOVIRUS VIRAEMIA [None]
  - MYELODYSPLASTIC SYNDROME [None]
  - RASH GENERALISED [None]
  - LUNG NEOPLASM [None]
  - PANCYTOPENIA [None]
  - ACUTE GRAFT VERSUS HOST DISEASE IN SKIN [None]
  - THROMBOCYTOPENIA [None]
  - MARROW HYPERPLASIA [None]
  - FUNGAL INFECTION [None]
  - STEM CELL TRANSPLANT [None]
  - NEOPLASM RECURRENCE [None]
  - LEG AMPUTATION [None]
  - ACUTE GRAFT VERSUS HOST DISEASE IN LIVER [None]
